FAERS Safety Report 22368719 (Version 1)
Quarter: 2023Q2

REPORT INFORMATION
  Report Type: Spontaneous
  Country: US (occurrence: US)
  Receive Date: 20230525
  Receipt Date: 20230525
  Transmission Date: 20230722
  Serious: Yes (Hospitalization, Other)
  Sender: FDA-Public Use
  Company Number: US-BIOVITRUM-2023-US-009421

PATIENT
  Age: 44 Year
  Sex: Female

DRUGS (2)
  1. KINERET [Suspect]
     Active Substance: ANAKINRA
     Indication: Still^s disease
     Dosage: DAILY
     Route: 058
     Dates: start: 20190516
  2. KINERET [Suspect]
     Active Substance: ANAKINRA
     Dosage: TWICE DAILY
     Route: 058
     Dates: start: 201905

REACTIONS (12)
  - Dysuria [Unknown]
  - Still^s disease [Unknown]
  - Condition aggravated [Unknown]
  - Liver function test increased [Unknown]
  - Serum ferritin increased [Unknown]
  - Fibrin D dimer increased [Unknown]
  - Red blood cell count decreased [Unknown]
  - Haemoglobin decreased [Unknown]
  - Haematocrit decreased [Unknown]
  - Abdominal pain upper [Unknown]
  - Intentional product misuse [Unknown]
  - Infection [Unknown]

NARRATIVE: CASE EVENT DATE: 20190516
